FAERS Safety Report 22255169 (Version 1)
Quarter: 2023Q2

REPORT INFORMATION
  Report Type: Spontaneous
  Country: US (occurrence: US)
  Receive Date: 20230426
  Receipt Date: 20230426
  Transmission Date: 20230722
  Serious: No
  Sender: FDA-Public Use
  Company Number: US-AMNEAL PHARMACEUTICALS-2023-AMRX-00745

PATIENT
  Sex: Female

DRUGS (3)
  1. WARFARIN SODIUM [Suspect]
     Active Substance: WARFARIN SODIUM
     Indication: Product used for unknown indication
     Dosage: UNK
     Route: 065
  2. LENVIMA [Concomitant]
     Active Substance: LENVATINIB
     Indication: Anaplastic thyroid cancer
     Dosage: 14 MILLIGRAM, QD
     Route: 065
  3. KEYTRUDA [Concomitant]
     Active Substance: PEMBROLIZUMAB
     Indication: Anaplastic thyroid cancer
     Dosage: 200 MILLIGRAM, EVERY 3WK
     Route: 065

REACTIONS (4)
  - Hypertension [Unknown]
  - Visual impairment [Unknown]
  - Urinary tract infection [Unknown]
  - International normalised ratio increased [Recovered/Resolved]
